FAERS Safety Report 16715601 (Version 1)
Quarter: 2019Q4

REPORT INFORMATION
  Report Type: Spontaneous
  Country: US (occurrence: US)
  Receive Date: 20190816
  Receipt Date: 20190816
  Transmission Date: 20200122
  Serious: No
  Sender: FDA-Public Use
  Company Number: None

PATIENT
  Age: 63 Year
  Sex: Female
  Weight: 99 kg

DRUGS (1)
  1. BANANA BOAT SIMPLY PROTECT SENSITIVE MINERAL ENRICHED SUNSCREEN UVA/UVB BS SPF50 [Suspect]
     Active Substance: HOMOSALATE\OCTISALATE\OCTOCRYLENE\ZINC OXIDE
     Indication: PROPHYLAXIS AGAINST SOLAR RADIATION
     Route: 061
     Dates: start: 20190811, end: 20190811

REACTIONS (5)
  - Urticaria [None]
  - Application site pruritus [None]
  - Application site pain [None]
  - Application site vesicles [None]
  - Product complaint [None]

NARRATIVE: CASE EVENT DATE: 20190811
